FAERS Safety Report 15600833 (Version 3)
Quarter: 2018Q4

REPORT INFORMATION
  Report Type: Spontaneous
  Country: US (occurrence: US)
  Receive Date: 20181109
  Receipt Date: 20181228
  Transmission Date: 20190205
  Serious: No
  Sender: FDA-Public Use
  Company Number: US-PFIZER INC-2017454440

PATIENT
  Age: 74 Year
  Sex: Male
  Weight: 73.92 kg

DRUGS (11)
  1. DOXAZOSIN MESYLATE. [Concomitant]
     Active Substance: DOXAZOSIN MESYLATE
     Dosage: 1 MG, DAILY,(AS DIRECTED)
     Route: 048
     Dates: start: 20121119
  2. MERCAPTOPURINE. [Concomitant]
     Active Substance: MERCAPTOPURINE
     Dosage: 50 MG, DAILY
     Route: 048
     Dates: start: 20150728
  3. DIPHENOXYLATE/ATROPINE [Concomitant]
     Active Substance: ATROPINE\DIPHENOXYLATE
     Indication: DIARRHOEA
     Dosage: UNK,(DIPHENOXYLATE:2.5; ATROPINE:0.025 1-2 TABLETS AFTER LOOSE STOOLS)
     Route: 048
     Dates: start: 20150507
  4. IRON [Concomitant]
     Active Substance: IRON
     Dosage: 325 MG, ALTERNATE DAY
     Route: 048
     Dates: start: 20100803
  5. PAROXETINE HCL [Concomitant]
     Active Substance: PAROXETINE HYDROCHLORIDE
     Dosage: 15 MG, DAILY [1.5 TABLETS DAILY]
     Route: 048
     Dates: start: 20140326
  6. LYRICA [Suspect]
     Active Substance: PREGABALIN
     Dosage: 150 MG, 1X/DAY
     Route: 048
     Dates: start: 2018
  7. LYRICA [Suspect]
     Active Substance: PREGABALIN
     Indication: POLYNEUROPATHY IDIOPATHIC PROGRESSIVE
     Dosage: 150 MG, 2X/DAY
     Route: 048
     Dates: start: 20170224
  8. LYRICA [Suspect]
     Active Substance: PREGABALIN
     Indication: NEUROPATHY PERIPHERAL
     Dosage: 150 MG, 2X/DAY
     Route: 048
  9. VITAMIN B12 [Concomitant]
     Active Substance: CYANOCOBALAMIN
     Dosage: 500 UG, DAILY (TAKE 1 TABLET DAILY, MON-FRI)
     Route: 048
     Dates: start: 20100706
  10. VITAMIN D3 [Concomitant]
     Active Substance: CHOLECALCIFEROL
     Dosage: 2 DF, 1X/DAY [1000 UNIT, 2 TABLETS IN PM]
     Route: 048
     Dates: start: 20170403
  11. LYRICA [Suspect]
     Active Substance: PREGABALIN
     Dosage: 75 MG, 2X/DAY (TAKE 1 CAPSULE TWICE DAILY)
     Route: 048

REACTIONS (3)
  - Drug effect incomplete [Unknown]
  - Somnolence [Recovering/Resolving]
  - Intentional product use issue [Unknown]

NARRATIVE: CASE EVENT DATE: 2018
